FAERS Safety Report 25747644 (Version 3)
Quarter: 2025Q4

REPORT INFORMATION
  Report Type: Report from Study
  Country: PR (occurrence: PR)
  Receive Date: 20250901
  Receipt Date: 20251112
  Transmission Date: 20260117
  Serious: Yes (Hospitalization)
  Sender: ABBVIE
  Company Number: PR-ABBVIE-6436929

PATIENT
  Age: 59 Year
  Sex: Female

DRUGS (6)
  1. VENCLEXTA [Suspect]
     Active Substance: VENETOCLAX
     Indication: Acute myeloid leukaemia
     Dosage: LAST ADMIN DATE: 2025
     Route: 048
     Dates: start: 20250606
  2. VENCLEXTA [Suspect]
     Active Substance: VENETOCLAX
     Indication: Acute myeloid leukaemia
     Dosage: LAST ADMIN DATE 2025
     Route: 048
     Dates: start: 2025
  3. VENCLEXTA [Suspect]
     Active Substance: VENETOCLAX
     Indication: Acute myeloid leukaemia
     Dosage: FIRST ADMIN DATE: 2025, FREQ- 4 IN 28 DAYS
     Route: 048
     Dates: end: 20250905
  4. SYNTHROID [Concomitant]
     Active Substance: LEVOTHYROXINE SODIUM
     Indication: Product used for unknown indication
     Dosage: 50 MCG
     Route: 048
  5. LOSARTAN POTASSIUM [Concomitant]
     Active Substance: LOSARTAN POTASSIUM
     Indication: Product used for unknown indication
     Route: 048
  6. TYLENOL 8HR [Concomitant]
     Active Substance: ACETAMINOPHEN
     Indication: Product used for unknown indication
     Dosage: ARTHRITIS

REACTIONS (11)
  - Fatigue [Unknown]
  - Arthralgia [Recovering/Resolving]
  - Back pain [Recovering/Resolving]
  - Arthralgia [Recovered/Resolved]
  - Constipation [Recovered/Resolved]
  - Haemoglobin decreased [Recovered/Resolved]
  - Nausea [Recovering/Resolving]
  - Urinary tract infection [Recovering/Resolving]
  - Arthritis [Recovering/Resolving]
  - White blood cell count decreased [Recovered/Resolved]
  - Urinary tract infection [Recovered/Resolved]

NARRATIVE: CASE EVENT DATE: 20250101
